FAERS Safety Report 18676909 (Version 1)
Quarter: 2020Q4

REPORT INFORMATION
  Report Type: Spontaneous
  Country: FR (occurrence: FR)
  Receive Date: 20201229
  Receipt Date: 20201229
  Transmission Date: 20210114
  Serious: Yes (Hospitalization)
  Sender: FDA-Public Use
  Company Number: FR-MYLANLABS-2020M1104108

PATIENT
  Age: 14 Year
  Sex: Female
  Weight: 56.5 kg

DRUGS (8)
  1. LEVOTHYROX [Concomitant]
     Active Substance: LEVOTHYROXINE
     Dosage: UNK
     Route: 048
  2. VANCOMYCINE MYLAN 500 MG POUDRE POUR SOLUTION POUR PERFUSION [Suspect]
     Active Substance: VANCOMYCIN
     Indication: ANTIBIOTIC PROPHYLAXIS
     Dosage: 30 MILLIGRAM/KILOGRAM OVER 30 MINUTES
     Route: 042
     Dates: start: 20201116, end: 20201116
  3. HYDROCORTISONE ROUSSEL             /00028604/ [Concomitant]
     Active Substance: HYDROCORTISONE ACETATE
     Dosage: UNK
     Route: 048
  4. SEVOFLURANE BAXTER [Concomitant]
     Active Substance: SEVOFLURANE
     Route: 055
     Dates: start: 20201116, end: 20201116
  5. MINIRINMELT [Concomitant]
     Active Substance: DESMOPRESSIN ACETATE
     Dosage: UNK
     Route: 048
  6. SUFENTANIL [Concomitant]
     Active Substance: SUFENTANIL
     Dosage: UNK
     Route: 042
     Dates: start: 20201116, end: 20201116
  7. OESCLIM [Concomitant]
     Active Substance: ESTRADIOL
     Dosage: UNK
     Route: 062
  8. DIPRIVAN [Concomitant]
     Active Substance: PROPOFOL
     Route: 042
     Dates: start: 20201116, end: 20201116

REACTIONS (4)
  - Hypotension [Recovered/Resolved]
  - Anaphylactic shock [Recovered/Resolved]
  - Dermatitis allergic [Recovered/Resolved]
  - Wrong rate [Recovered/Resolved]

NARRATIVE: CASE EVENT DATE: 20201116
